FAERS Safety Report 7400584-5 (Version None)
Quarter: 2011Q2

REPORT INFORMATION
  Report Type: 
  Country: None (occurrence: None)
  Receive Date: 20110407
  Receipt Date: 20110406
  Transmission Date: 20111010
  Serious: Yes (Hospitalization, Other)
  Sender: FDA-Public Use
  Company Number: CH-PFIZER INC-2011063852

PATIENT
  Age: 86 Year
  Sex: Female

DRUGS (7)
  1. DAFALGAN [Concomitant]
     Dosage: 1 G, 4X/DAY
     Dates: end: 20110121
  2. FENTANYL [Suspect]
     Indication: BACK PAIN
     Dosage: 1 DF, 2X/WEEK EVERY 3 DAYS
     Route: 061
     Dates: start: 20070101, end: 20110117
  3. TOLTERODINE TARTRATE [Suspect]
     Dosage: 4 MG, 1X/DAY
     Route: 048
     Dates: start: 20100901, end: 20110119
  4. JANUVIA [Suspect]
     Dosage: 100 MG, 1X/DAY
     Route: 048
     Dates: start: 20100901, end: 20110119
  5. MOTILIUM [Concomitant]
     Dosage: 10 MG, 3X/DAY
     Route: 048
     Dates: start: 20101201, end: 20110119
  6. ZOLPIDEM [Concomitant]
     Dosage: 5 MG, 1X/DAY
     Route: 048
  7. REMERON [Suspect]
     Dosage: 30 MG, 1X/DAY
     Route: 048
     Dates: start: 20110107, end: 20110119

REACTIONS (17)
  - DECREASED APPETITE [None]
  - RASH PRURITIC [None]
  - ESCHERICHIA URINARY TRACT INFECTION [None]
  - WEIGHT DECREASED [None]
  - SHIFT TO THE LEFT [None]
  - CONSTIPATION [None]
  - ABDOMINAL PAIN UPPER [None]
  - HYPOKALAEMIA [None]
  - CYTOLYTIC HEPATITIS [None]
  - HYPONATRAEMIA [None]
  - RASH MACULAR [None]
  - ESCHERICHIA BACTERAEMIA [None]
  - NAUSEA [None]
  - GENERAL PHYSICAL HEALTH DETERIORATION [None]
  - VOMITING [None]
  - TACHYCARDIA [None]
  - LEUKOCYTOSIS [None]
